FAERS Safety Report 14288436 (Version 1)
Quarter: 2017Q4

REPORT INFORMATION
  Report Type: Spontaneous
  Country: US (occurrence: US)
  Receive Date: 20171215
  Receipt Date: 20171215
  Transmission Date: 20180321
  Serious: No
  Sender: FDA-Public Use
  Company Number: US-HORIZON-DUE-0226-2017

PATIENT
  Sex: Male

DRUGS (1)
  1. DUEXIS [Suspect]
     Active Substance: FAMOTIDINE\IBUPROFEN
     Indication: JOINT INJURY

REACTIONS (4)
  - Off label use [Unknown]
  - Arthralgia [Unknown]
  - Product odour abnormal [Unknown]
  - Product physical issue [Unknown]
